FAERS Safety Report 5206289-3 (Version None)
Quarter: 2006Q4

REPORT INFORMATION
  Report Type: 
  Country: None (occurrence: None)
  Receive Date: 20061031
  Receipt Date: 20060710
  Transmission Date: 20070319
  Serious: No
  Sender: FDA-Public Use
  Company Number: 2006-BP-07852BP

PATIENT
  Sex: Male

DRUGS (17)
  1. APTIVUS/RITONAVIR CAPSULES [Suspect]
     Indication: HIV INFECTION
     Dosage: SEE TEXT (SEE TEXT, TPV/R 250/100MG (2 CAPSULES BID, PO)
     Route: 048
     Dates: start: 20050101
  2. OXALIPLATIN [Concomitant]
  3. XELODA [Concomitant]
  4. TRUVADA [Concomitant]
  5. BACTRIM [Concomitant]
  6. SEREVENT [Concomitant]
  7. SINGULAIR [Concomitant]
  8. AEROBID [Concomitant]
  9. ALBUTEROL [Concomitant]
  10. ACTOS [Concomitant]
  11. INSULIN [Concomitant]
  12. ACYCLOVIR [Concomitant]
  13. PRAVACHOL [Concomitant]
  14. LISINOPRIL [Concomitant]
  15. TOPROL-XL [Concomitant]
  16. ZETIA [Concomitant]
  17. PRILOSEC [Concomitant]

REACTIONS (3)
  - BLOOD DISORDER [None]
  - CONTUSION [None]
  - PURPURA [None]
